FAERS Safety Report 5491800-8 (Version None)
Quarter: 2007Q4

REPORT INFORMATION
  Report Type: 
  Country: None (occurrence: None)
  Receive Date: 20071018
  Receipt Date: 20071005
  Transmission Date: 20080405
  Serious: Yes (Other)
  Sender: FDA-Public Use
  Company Number: 2007SP020724

PATIENT
  Age: 48 Year
  Sex: Male
  Weight: 122.4712 kg

DRUGS (4)
  1. CLARITIN-D 24 HOUR [Suspect]
     Indication: NASOPHARYNGITIS
     Dosage: 1 DF; QD; PO
     Route: 048
     Dates: start: 20070901, end: 20071002
  2. CLARITIN [Suspect]
     Indication: DRUG USE FOR UNKNOWN INDICATION
     Dosage: PO
     Route: 048
     Dates: start: 20071001
  3. ADVAIR (CON.) [Concomitant]
  4. FLONASE (CON.) [Concomitant]

REACTIONS (1)
  - HYPERTENSION [None]
